FAERS Safety Report 5634677-X (Version None)
Quarter: 2008Q1

REPORT INFORMATION
  Report Type: 
  Country: None (occurrence: None)
  Receive Date: 20080222
  Receipt Date: 20080219
  Transmission Date: 20080703
  Serious: Yes (Hospitalization, Other)
  Sender: FDA-Public Use
  Company Number: TR-BRISTOL-MYERS SQUIBB COMPANY-14080246

PATIENT
  Age: 2 Year
  Sex: Male

DRUGS (3)
  1. CYCLOPHOSPHAMIDE [Suspect]
     Indication: RHABDOMYOSARCOMA
     Dosage: 1 DOSAGE FORM - 2.2G/M2, REDUCED TO 1.8G/M2 AND THEN AGAIN REDUCED TO 1.5G/M2
  2. VINCRISTINE [Suspect]
     Indication: RHABDOMYOSARCOMA
  3. DACTINOMYCIN [Suspect]
     Indication: RHABDOMYOSARCOMA
     Dosage: 3-WEEKLY DACTINOMYCIN 0.015 MG/KG TIMES 5 DAYS

REACTIONS (3)
  - BONE MARROW FAILURE [None]
  - FEBRILE NEUTROPENIA [None]
  - VENOUS OCCLUSION [None]
